FAERS Safety Report 19649152 (Version 2)
Quarter: 2022Q3

REPORT INFORMATION
  Report Type: Spontaneous
  Country: CA (occurrence: CA)
  Receive Date: 20210803
  Receipt Date: 20220804
  Transmission Date: 20221027
  Serious: Yes (Other)
  Sender: FDA-Public Use
  Company Number: CA-SA-SAC20210728000569

PATIENT
  Age: 48 Year
  Sex: Female

DRUGS (9)
  1. LEFLUNOMIDE [Suspect]
     Active Substance: LEFLUNOMIDE
     Indication: Rheumatoid arthritis
     Route: 065
  2. LEFLUNOMIDE [Suspect]
     Active Substance: LEFLUNOMIDE
     Route: 065
  3. ESOMEPRAZOLE MAGNESIUM\NAPROXEN [Concomitant]
     Active Substance: ESOMEPRAZOLE MAGNESIUM\NAPROXEN
     Indication: Product used for unknown indication
     Dosage: UNK
  4. HYDROXYCHLOROQUINE [Concomitant]
     Active Substance: HYDROXYCHLOROQUINE
     Indication: Product used for unknown indication
     Route: 065
  5. HYDROXYCHLOROQUINE [Concomitant]
     Active Substance: HYDROXYCHLOROQUINE
  6. PLAQUENIL [Concomitant]
     Active Substance: HYDROXYCHLOROQUINE SULFATE
     Indication: Product used for unknown indication
     Route: 065
  7. PLAQUENIL [Concomitant]
     Active Substance: HYDROXYCHLOROQUINE SULFATE
  8. SULFASALAZINE [Concomitant]
     Active Substance: SULFASALAZINE
     Indication: Product used for unknown indication
     Route: 065
  9. SULFASALAZINE [Concomitant]
     Active Substance: SULFASALAZINE

REACTIONS (17)
  - Bursa disorder [Not Recovered/Not Resolved]
  - Drug intolerance [Unknown]
  - Insomnia [Unknown]
  - Pain [Unknown]
  - Lip discolouration [Unknown]
  - Nasal congestion [Unknown]
  - Cough [Not Recovered/Not Resolved]
  - Rheumatoid arthritis [Recovered/Resolved]
  - Ophthalmic migraine [Unknown]
  - Oropharyngeal pain [Unknown]
  - Fatigue [Not Recovered/Not Resolved]
  - Dyspnoea [Unknown]
  - Nausea [Unknown]
  - Diarrhoea [Unknown]
  - Therapeutic response changed [Unknown]
  - Therapeutic response decreased [Unknown]
  - COVID-19 [Recovered/Resolved]

NARRATIVE: CASE EVENT DATE: 20200323
